FAERS Safety Report 4279578-7 (Version None)
Quarter: 2004Q1

REPORT INFORMATION
  Report Type: 
  Country: None (occurrence: None)
  Receive Date: 20040123
  Receipt Date: 20040120
  Transmission Date: 20041129
  Serious: Yes (Hospitalization)
  Sender: FDA-Public Use
  Company Number: 2003186510JP

PATIENT
  Age: 43 Year
  Sex: Female

DRUGS (5)
  1. AZULFIDINE [Suspect]
     Indication: RHEUMATOID ARTHRITIS
     Dosage: 1 G, QD, ORAL
     Route: 048
     Dates: start: 20030806, end: 20030825
  2. VOLTAREN [Concomitant]
  3. TAGAMET [Concomitant]
  4. HYPEN (ETODOLAC) [Concomitant]
  5. ORCL (ACTARIT) [Concomitant]

REACTIONS (10)
  - DIARRHOEA [None]
  - HEPATIC FUNCTION ABNORMAL [None]
  - INFECTIOUS MONONUCLEOSIS [None]
  - INFLAMMATION [None]
  - LYMPHADENOPATHY [None]
  - OEDEMA [None]
  - PRURITUS [None]
  - PYREXIA [None]
  - RASH [None]
  - SPLENOMEGALY [None]
